FAERS Safety Report 17534576 (Version 2)
Quarter: 2020Q1

REPORT INFORMATION
  Report Type: Spontaneous
  Country: JP (occurrence: JP)
  Receive Date: 20200312
  Receipt Date: 20200317
  Transmission Date: 20200409
  Serious: Yes (Other)
  Sender: FDA-Public Use
  Company Number: NVSJ2020JP003110

PATIENT
  Age: 67 Year
  Sex: Male

DRUGS (1)
  1. ZOLEDRONIC ACID [Suspect]
     Active Substance: ZOLEDRONIC ACID
     Indication: METASTASES TO BONE
     Dosage: UNK
     Route: 065

REACTIONS (8)
  - Swelling face [Unknown]
  - Inflammation [Unknown]
  - Osteonecrosis of jaw [Not Recovered/Not Resolved]
  - Exposed bone in jaw [Unknown]
  - Bone sequestrum [Unknown]
  - Periorbital abscess [Unknown]
  - Brain abscess [Unknown]
  - Bone loss [Unknown]
